FAERS Safety Report 16123928 (Version 4)
Quarter: 2019Q2

REPORT INFORMATION
  Report Type: Spontaneous
  Country: CN (occurrence: CN)
  Receive Date: 20190327
  Receipt Date: 20190521
  Transmission Date: 20190711
  Serious: Yes (Death, Other)
  Sender: FDA-Public Use
  Company Number: CN-PFIZER INC-2019128686

PATIENT
  Age: 56 Year
  Sex: Female
  Weight: 65 kg

DRUGS (10)
  1. CYTARABINE. [Suspect]
     Active Substance: CYTARABINE
     Indication: B-CELL LYMPHOMA
     Dosage: 50 MG, 1X/DAY
     Route: 037
     Dates: start: 20181224, end: 20181224
  2. GLUCOSE [Concomitant]
     Active Substance: DEXTROSE
     Indication: VEHICLE SOLUTION USE
     Dosage: 500 ML, 1X/DAY
     Route: 041
     Dates: start: 20181219, end: 20181219
  3. METHOTREXATE SODIUM. [Suspect]
     Active Substance: METHOTREXATE SODIUM
     Indication: B-CELL LYMPHOMA
     Dosage: 0.5 G, 1X/DAY
     Route: 041
     Dates: start: 20181219, end: 20181219
  4. METHOTREXATE SODIUM. [Suspect]
     Active Substance: METHOTREXATE SODIUM
     Dosage: 4.5 G, 1X/DAY
     Route: 041
     Dates: start: 20181219, end: 20181219
  5. SODIUM CHLORIDE. [Concomitant]
     Active Substance: SODIUM CHLORIDE
     Indication: VEHICLE SOLUTION USE
     Dosage: 100 ML, 1X/DAY
     Route: 041
     Dates: start: 20181218, end: 20181218
  6. DEXAMETHASONE SODIUM PHOSPHATE EIPICO [Concomitant]
     Indication: PROPHYLAXIS
     Dosage: 5 MG, 1X/DAY
     Route: 037
     Dates: start: 20181224, end: 20181224
  7. IDARUBICIN HYDROCHLORIDE. [Suspect]
     Active Substance: IDARUBICIN HYDROCHLORIDE
     Indication: B-CELL LYMPHOMA
     Dosage: 15 MG, 1X/DAY
     Route: 041
     Dates: start: 20181218, end: 20181218
  8. SODIUM CHLORIDE. [Concomitant]
     Active Substance: SODIUM CHLORIDE
     Dosage: 2 UNK, UNK
     Route: 037
     Dates: start: 20181224, end: 20181224
  9. METHOTREXATE. [Suspect]
     Active Substance: METHOTREXATE
     Indication: B-CELL LYMPHOMA
     Dosage: 10 MG, 1X/DAY
     Route: 037
     Dates: start: 20181224, end: 20181224
  10. SODIUM CHLORIDE. [Concomitant]
     Active Substance: SODIUM CHLORIDE
     Dosage: 500 ML, 1X/DAY
     Route: 041
     Dates: start: 20181219, end: 20181219

REACTIONS (3)
  - Death [Fatal]
  - Bone marrow failure [Unknown]
  - Infection [Unknown]

NARRATIVE: CASE EVENT DATE: 20181231
